FAERS Safety Report 17300992 (Version 1)
Quarter: 2020Q1

REPORT INFORMATION
  Report Type: Spontaneous
  Country: US (occurrence: US)
  Receive Date: 20200122
  Receipt Date: 20200122
  Transmission Date: 20200409
  Serious: Yes (Hospitalization)
  Sender: FDA-Public Use
  Company Number: US-FRESENIUS MEDICAL CARE RENAL THERAPIES GROUP-FMC-2001-000065

PATIENT
  Sex: Female
  Weight: 100 kg

DRUGS (17)
  1. ATORVASTATIN [Concomitant]
     Active Substance: ATORVASTATIN
  2. DULCOLAX NOS [Concomitant]
     Active Substance: BISACODYL OR DOCUSATE SODIUM
  3. GLYBURIDE. [Concomitant]
     Active Substance: GLYBURIDE
  4. LACTULOSE. [Concomitant]
     Active Substance: LACTULOSE
  5. AMMONIUM LACTATE LOTION [Concomitant]
     Active Substance: AMMONIUM LACTATE
  6. DELFLEX WITH DEXTROSE 4.25% LOW MAGNESIUM LOW CALCIUM [Suspect]
     Active Substance: CALCIUM CHLORIDE\DEXTROSE\MAGNESIUM CHLORIDE\SODIUM CHLORIDE\SODIUM LACTATE
     Indication: END STAGE RENAL DISEASE
     Dosage: FILL VOLUME = 2500 ML, 5 EXCHANGES, LAST FILL = 2500 ML, 1 DAYTIME EXCHANGE = 2500 ML.
     Route: 033
     Dates: start: 20190802
  7. COLACE [Concomitant]
     Active Substance: DOCUSATE SODIUM
  8. FOLIC ACID. [Concomitant]
     Active Substance: FOLIC ACID
  9. DELFLEX WITH DEXTROSE 2.5% LOW MAGNESIUM LOW CALCIUM [Suspect]
     Active Substance: CALCIUM CHLORIDE\DEXTROSE\MAGNESIUM CHLORIDE\SODIUM CHLORIDE\SODIUM LACTATE
     Indication: END STAGE RENAL DISEASE
     Dosage: FILL VOLUME = 2500 ML, 5 EXCHANGES, LAST FILL = 2500 ML, 1 DAYTIME EXCHANGE = 2500 ML.
     Route: 033
     Dates: start: 20190802
  10. RENAPLEX D [Concomitant]
  11. VITAMIN D3 [Concomitant]
     Active Substance: CHOLECALCIFEROL
  12. GABAPENTIN. [Concomitant]
     Active Substance: GABAPENTIN
  13. RENVELA [Concomitant]
     Active Substance: SEVELAMER CARBONATE
  14. DELFLEX WITH DEXTROSE 1.5% LOW MAGNESIUM LOW CALCIUM [Suspect]
     Active Substance: CALCIUM CHLORIDE\DEXTROSE\MAGNESIUM CHLORIDE\SODIUM CHLORIDE\SODIUM LACTATE
     Indication: END STAGE RENAL DISEASE
     Dosage: FILL VOLUME = 2500 ML, 5 EXCHANGES, LAST FILL = 2500 ML, 1 DAYTIME EXCHANGE = 2500 ML.
     Route: 033
     Dates: start: 20190802
  15. PROTONIX [Concomitant]
     Active Substance: PANTOPRAZOLE SODIUM
  16. CALCITRIOL. [Concomitant]
     Active Substance: CALCITRIOL
  17. GENTAMYCIN CREAM [Concomitant]
     Active Substance: GENTAMICIN

REACTIONS (1)
  - Hypotension [Unknown]
